FAERS Safety Report 4721581-4 (Version None)
Quarter: 2005Q3

REPORT INFORMATION
  Report Type: 
  Country: None (occurrence: None)
  Receive Date: 20050721
  Receipt Date: 20041208
  Transmission Date: 20060218
  Serious: No
  Sender: FDA-Public Use
  Company Number: US-BRISTOL-MYERS SQUIBB COMPANY-12790077

PATIENT
  Age: 61 Year
  Sex: Male
  Weight: 85 kg

DRUGS (7)
  1. COUMADIN [Suspect]
     Indication: AORTIC VALVE REPLACEMENT
     Dosage: BEGAN ^IN JUNE^ 2.5 YEARS AGO
     Route: 048
  2. BETAPACE [Concomitant]
  3. LESCOL [Concomitant]
  4. LOVENOX [Concomitant]
     Dates: start: 20041001, end: 20041001
  5. MAXIDEX [Concomitant]
  6. PRILOSEC [Concomitant]
  7. ZESTRIL [Concomitant]

REACTIONS (2)
  - INTERNATIONAL NORMALISED RATIO DECREASED [None]
  - PROTHROMBIN TIME SHORTENED [None]
